FAERS Safety Report 5989268-8 (Version None)
Quarter: 2008Q4

REPORT INFORMATION
  Report Type: 
  Country: None (occurrence: None)
  Receive Date: 20081210
  Receipt Date: 20081203
  Transmission Date: 20090506
  Serious: Yes (Life-Threatening, Hospitalization)
  Sender: FDA-Public Use
  Company Number: NL-ELI_LILLY_AND_COMPANY-NL200812001547

PATIENT
  Sex: Female
  Weight: 63 kg

DRUGS (1)
  1. GEMZAR [Suspect]
     Indication: PANCREATIC CARCINOMA
     Dosage: 1000 MG/M2, EVERY 9 WEEKS
     Route: 042
     Dates: start: 20080701, end: 20081001

REACTIONS (3)
  - PNEUMONIA [None]
  - PYREXIA [None]
  - TOTAL LUNG CAPACITY DECREASED [None]
